FAERS Safety Report 7038991-5 (Version None)
Quarter: 2010Q4

REPORT INFORMATION
  Report Type: 
  Country: None (occurrence: None)
  Receive Date: 20101012
  Receipt Date: 20101004
  Transmission Date: 20110411
  Serious: Yes (Death, Life-Threatening, Hospitalization)
  Sender: FDA-Public Use
  Company Number: US-US-EMD SERONO, INC.-234935K09USA

PATIENT
  Sex: Female
  Weight: 136 kg

DRUGS (6)
  1. REBIF [Suspect]
     Indication: MULTIPLE SCLEROSIS
     Route: 058
     Dates: start: 20050907, end: 20090401
  2. REBIF [Suspect]
     Route: 058
     Dates: start: 20090101, end: 20100101
  3. BACLOFEN [Concomitant]
     Indication: MUSCLE SPASMS
     Route: 065
     Dates: end: 20100101
  4. DOXEPIN HCL [Concomitant]
     Indication: ANTIDEPRESSANT THERAPY
     Route: 065
     Dates: end: 20100101
  5. TOPROL-XL [Concomitant]
     Indication: HYPERTENSION
     Route: 065
     Dates: end: 20100101
  6. UNSPECIFIED MEDICATION [Concomitant]
     Route: 065
     Dates: end: 20100101

REACTIONS (8)
  - BRONCHITIS [None]
  - CARBON DIOXIDE INCREASED [None]
  - CHRONIC OBSTRUCTIVE PULMONARY DISEASE [None]
  - FLUID OVERLOAD [None]
  - OXYGEN SATURATION ABNORMAL [None]
  - PNEUMONIA [None]
  - SINUSITIS [None]
  - SLEEP APNOEA SYNDROME [None]
